FAERS Safety Report 5400079-4 (Version None)
Quarter: 2007Q3

REPORT INFORMATION
  Report Type: 
  Country: None (occurrence: None)
  Receive Date: 20070726
  Receipt Date: 20070726
  Transmission Date: 20080115
  Serious: Yes (Other)
  Sender: FDA-Public Use
  Company Number: None

PATIENT
  Age: 56 Year
  Sex: Female
  Weight: 87.5442 kg

DRUGS (1)
  1. PRO-HEALTH N/A CREST [Suspect]
     Indication: DENTAL DISORDER PROPHYLAXIS
     Dosage: 20 ML 2X DAILY PO
     Route: 048
     Dates: start: 20070201, end: 20070710

REACTIONS (2)
  - PHARMACEUTICAL PRODUCT COMPLAINT [None]
  - TOOTH DISCOLOURATION [None]
